FAERS Safety Report 21087436 (Version 1)
Quarter: 2022Q3

REPORT INFORMATION
  Report Type: Spontaneous
  Country: US (occurrence: US)
  Receive Date: 20220715
  Receipt Date: 20220715
  Transmission Date: 20221026
  Serious: No
  Sender: FDA-Public Use
  Company Number: US-BEH-2022147363

PATIENT
  Sex: Female

DRUGS (2)
  1. HIZENTRA [Suspect]
     Active Substance: HUMAN IMMUNOGLOBULIN G
     Indication: Stiff person syndrome
     Dosage: 20 GRAM, BIW
     Route: 058
     Dates: start: 20220204
  2. BRILINTA [Suspect]
     Active Substance: TICAGRELOR

REACTIONS (4)
  - Swelling [Unknown]
  - Dyspnoea [Unknown]
  - No adverse event [Unknown]
  - Off label use [Unknown]
